FAERS Safety Report 19714035 (Version 1)
Quarter: 2021Q3

REPORT INFORMATION
  Report Type: Spontaneous
  Country: US (occurrence: US)
  Receive Date: 20210817
  Receipt Date: 20210817
  Transmission Date: 20211014
  Serious: Yes (Death, Hospitalization)
  Sender: FDA-Public Use
  Company Number: None

PATIENT
  Sex: Female
  Weight: 14.1 kg

DRUGS (5)
  1. DEXAMETHASONE. [Concomitant]
     Active Substance: DEXAMETHASONE
  2. ONCASPAR [Concomitant]
     Active Substance: PEGASPARGASE
  3. CYTARABINE. [Suspect]
     Active Substance: CYTARABINE
  4. METHOTREXATE. [Concomitant]
     Active Substance: METHOTREXATE
  5. VINCRISTINE SULFATE. [Concomitant]
     Active Substance: VINCRISTINE SULFATE

REACTIONS (20)
  - Heart rate increased [None]
  - Fatigue [None]
  - Bradycardia [None]
  - Hypotension [None]
  - Abdominal distension [None]
  - Tachycardia [None]
  - Urine output decreased [None]
  - Atelectasis [None]
  - Ascites [None]
  - Hypoxia [None]
  - Dyspnoea [None]
  - Pallor [None]
  - Sepsis [None]
  - Candida infection [None]
  - Vomiting [None]
  - Malaise [None]
  - Gastrointestinal motility disorder [None]
  - Peritonitis [None]
  - Aspiration [None]
  - Pleural effusion [None]

NARRATIVE: CASE EVENT DATE: 20210805
